FAERS Safety Report 6648688-9 (Version None)
Quarter: 2010Q1

REPORT INFORMATION
  Report Type: 
  Country: None (occurrence: None)
  Receive Date: 20100324
  Receipt Date: 20100312
  Transmission Date: 20100710
  Serious: Yes (Other)
  Sender: FDA-Public Use
  Company Number: US-PFIZER INC-2010032431

PATIENT

DRUGS (2)
  1. TIKOSYN [Suspect]
  2. LEVAQUIN [Suspect]

REACTIONS (1)
  - DRUG INTERACTION [None]
